FAERS Safety Report 9255568 (Version 1)
Quarter: 2013Q2

REPORT INFORMATION
  Report Type: Spontaneous
  Country: US (occurrence: US)
  Receive Date: 20130425
  Receipt Date: 20130425
  Transmission Date: 20140414
  Serious: No
  Sender: FDA-Public Use
  Company Number: US-BAUSCH-2012BL004091

PATIENT
  Age: 91 Year
  Sex: Female

DRUGS (2)
  1. ALREX (LOTEPREDNOL ETABONATE OPHTHALMIC SUSPENSION 0.2%) [Suspect]
     Indication: DRY EYE
     Dosage: ONE DROP TO BOTH EYES TWICE DAILY
     Route: 047
     Dates: start: 20120622, end: 20120626
  2. ALREX (LOTEPREDNOL ETABONATE OPHTHALMIC SUSPENSION 0.2%) [Suspect]
     Indication: OFF LABEL USE

REACTIONS (3)
  - Wrong technique in drug usage process [Not Recovered/Not Resolved]
  - Incorrect dose administered [Not Recovered/Not Resolved]
  - Eye irritation [Not Recovered/Not Resolved]
